FAERS Safety Report 7199547-7 (Version None)
Quarter: 2010Q4

REPORT INFORMATION
  Report Type: 
  Country: None (occurrence: None)
  Receive Date: 20101228
  Receipt Date: 20101223
  Transmission Date: 20110411
  Serious: Yes (Death, Other)
  Sender: FDA-Public Use
  Company Number: PHHY2009US66774

PATIENT
  Sex: Female
  Weight: 117 kg

DRUGS (8)
  1. EXJADE [Suspect]
     Dosage: 500 MG, UNK
     Route: 048
     Dates: end: 20091001
  2. PERITONEAL DIALYSIS [Concomitant]
     Dosage: UNK
     Dates: start: 20050701
  3. COZAAR [Concomitant]
  4. HECTOROL [Concomitant]
  5. LOPRESSOR [Concomitant]
  6. SODIUM BICARBONATE [Concomitant]
  7. RENAGEL [Concomitant]
  8. PHOSLO [Concomitant]

REACTIONS (3)
  - PERITONITIS [None]
  - PLATELET COUNT INCREASED [None]
  - RENAL FAILURE CHRONIC [None]
